FAERS Safety Report 6215966-7 (Version None)
Quarter: 2009Q2

REPORT INFORMATION
  Report Type: 
  Country: None (occurrence: None)
  Receive Date: 20090605
  Receipt Date: 20090508
  Transmission Date: 20091009
  Serious: Yes (Death, Hospitalization, Disabling, Congenital Anomaly)
  Sender: FDA-Public Use
  Company Number: JP-BAYER-200910126BYL

PATIENT
  Age: 57 Year
  Sex: Male
  Weight: 49 kg

DRUGS (10)
  1. FLUDARA [Suspect]
     Indication: ADULT T-CELL LYMPHOMA/LEUKAEMIA STAGE IV
     Dosage: AS USED: 42 MG  UNIT DOSE: 50 MG
     Route: 042
     Dates: start: 20080904, end: 20080908
  2. CYCLOPHOSPHAMIDE [Concomitant]
     Indication: ADULT T-CELL LYMPHOMA/LEUKAEMIA STAGE IV
     Dosage: AS USED: 2900 MG
     Route: 042
     Dates: start: 20080902, end: 20080903
  3. DECADRON [Concomitant]
     Indication: ADULT T-CELL LYMPHOMA/LEUKAEMIA STAGE IV
     Dosage: AS USED: 8 MG
     Route: 042
     Dates: start: 20080902, end: 20080904
  4. UROMITEXAN [Concomitant]
     Dosage: AS USED: 2600 MG
     Route: 042
     Dates: start: 20080902, end: 20080903
  5. SANDIMMUNE [Concomitant]
     Indication: PROPHYLAXIS AGAINST GRAFT VERSUS HOST DISEASE
     Dosage: AS USED: 160 MG
     Route: 042
     Dates: start: 20080909, end: 20081120
  6. METHOTREXATE [Concomitant]
     Indication: PROPHYLAXIS AGAINST GRAFT VERSUS HOST DISEASE
     Dosage: AS USED: 15 MG
     Route: 042
     Dates: start: 20080911, end: 20080916
  7. PROGRAF [Concomitant]
     Indication: PROPHYLAXIS AGAINST GRAFT VERSUS HOST DISEASE
     Dosage: AS USED: 0.2 ML
     Route: 042
     Dates: start: 20080924, end: 20081014
  8. GASTER D [Concomitant]
     Dosage: AS USED: 1 DF
     Route: 048
     Dates: start: 20080626
  9. CONCENTRATED RED CELLS [Concomitant]
     Indication: PACKED RED BLOOD CELL TRANSFUSION
     Route: 042
     Dates: start: 20080912, end: 20081212
  10. PLATELETS [Concomitant]
     Indication: PLATELET TRANSFUSION
     Route: 042
     Dates: start: 20080908, end: 20081220

REACTIONS (16)
  - ANOREXIA [None]
  - BLOOD CREATININE INCREASED [None]
  - CANDIDIASIS [None]
  - CYSTITIS HAEMORRHAGIC [None]
  - CYTOMEGALOVIRUS VIRAEMIA [None]
  - DEATH [None]
  - ENCEPHALITIS [None]
  - FEBRILE NEUTROPENIA [None]
  - GASTROINTESTINAL HAEMORRHAGE [None]
  - HYPERAMMONAEMIA [None]
  - HYPERCALCAEMIA [None]
  - NAUSEA [None]
  - ORAL HERPES [None]
  - PNEUMONIA [None]
  - PYREXIA [None]
  - VENOOCCLUSIVE LIVER DISEASE [None]
